FAERS Safety Report 6452811-9 (Version None)
Quarter: 2009Q4

REPORT INFORMATION
  Report Type: 
  Country: None (occurrence: None)
  Receive Date: 20091124
  Receipt Date: 20091123
  Transmission Date: 20100525
  Serious: Yes (Disabling, Other)
  Sender: FDA-Public Use
  Company Number: US-PFIZER INC-2005098906

PATIENT
  Sex: Female
  Weight: 77 kg

DRUGS (9)
  1. PROVERA [Suspect]
     Indication: HORMONE REPLACEMENT THERAPY
     Dosage: UNK
     Route: 048
     Dates: start: 19890101, end: 19950101
  2. PREMARIN [Suspect]
     Indication: HORMONE REPLACEMENT THERAPY
     Dosage: UNK
     Route: 065
     Dates: start: 19890101, end: 19950101
  3. PREMARIN [Suspect]
     Indication: MENOPAUSE
  4. PREMPRO [Suspect]
     Indication: HORMONE REPLACEMENT THERAPY
     Dosage: UNK
     Route: 065
     Dates: start: 19950101, end: 20020101
  5. PREMPRO [Suspect]
     Indication: MENOPAUSE
  6. LISINOPRIL AND HYDROCHLOROTHIAZIDE [Concomitant]
     Indication: HYPERTENSION
     Dosage: UNK
     Dates: start: 19980101
  7. SYNTHROID [Concomitant]
     Indication: THYROID NEOPLASM
     Dosage: UNK
     Dates: start: 19880101
  8. NEXIUM [Concomitant]
     Dosage: UNK
     Dates: start: 20030101
  9. ACTONEL [Concomitant]
     Indication: OSTEOPOROSIS
     Dosage: UNK
     Dates: start: 20040101

REACTIONS (1)
  - BREAST CANCER [None]
